FAERS Safety Report 5085576-6 (Version None)
Quarter: 2006Q3

REPORT INFORMATION
  Report Type: 
  Country: None (occurrence: None)
  Receive Date: 20060822
  Receipt Date: 20060818
  Transmission Date: 20061208
  Serious: Yes (Other)
  Sender: FDA-Public Use
  Company Number: US-GLAXOSMITHKLINE-A0617304A

PATIENT
  Age: 47 Year

DRUGS (1)
  1. VALTREX [Suspect]
     Indication: DRUG USE FOR UNKNOWN INDICATION
     Route: 065

REACTIONS (4)
  - DIVERTICULITIS [None]
  - GENERAL PHYSICAL HEALTH DETERIORATION [None]
  - MIGRAINE [None]
  - VISUAL ACUITY REDUCED [None]
